FAERS Safety Report 17054201 (Version 2)
Quarter: 2019Q4

REPORT INFORMATION
  Report Type: Report from Study
  Country: IN (occurrence: IN)
  Receive Date: 20191120
  Receipt Date: 20191126
  Transmission Date: 20200122
  Serious: Yes (Hospitalization)
  Sender: FDA-Public Use
  Company Number: NVSC2019IN034517

PATIENT
  Age: 38 Year
  Sex: Male

DRUGS (14)
  1. PEMBROLIZUMAB COMP-PEMB+CSOLINF [Suspect]
     Active Substance: PEMBROLIZUMAB
     Indication: NON-SMALL CELL LUNG CANCER
  2. PLACEBO [Suspect]
     Active Substance: UNSPECIFIED INGREDIENT
     Indication: NON-SMALL CELL LUNG CANCER
  3. PEMBROLIZUMAB COMP-PEMB+CSOLINF [Suspect]
     Active Substance: PEMBROLIZUMAB
     Indication: SQUAMOUS CELL CARCINOMA OF LUNG
     Dosage: 200 MG, Q3W
     Route: 042
     Dates: start: 20190820
  4. ZOFER [Concomitant]
     Active Substance: ONDANSETRON HYDROCHLORIDE
     Indication: PROPHYLAXIS
     Dosage: 8 MG, BID
     Route: 048
     Dates: start: 20191025, end: 20191030
  5. CARBOPLATIN COMP-CAB+CSOLINF [Suspect]
     Active Substance: CARBOPLATIN
     Indication: NON-SMALL CELL LUNG CANCER
  6. ULTRACET [Concomitant]
     Active Substance: ACETAMINOPHEN\TRAMADOL HYDROCHLORIDE
     Indication: PAIN
     Dosage: UNK
     Route: 065
     Dates: start: 20190720
  7. ULTRACET [Concomitant]
     Active Substance: ACETAMINOPHEN\TRAMADOL HYDROCHLORIDE
     Indication: GENERAL PHYSICAL HEALTH DETERIORATION
  8. PLACEBO [Suspect]
     Active Substance: UNSPECIFIED INGREDIENT
     Indication: SQUAMOUS CELL CARCINOMA OF LUNG
     Dosage: 200 MG, Q3W
     Route: 058
     Dates: start: 20190820
  9. PEGSTIM [Concomitant]
     Indication: PROPHYLAXIS
     Dosage: 6 MG, TAB
     Route: 058
     Dates: start: 20190826, end: 20190826
  10. FOLVITE [Concomitant]
     Active Substance: FOLIC ACID
     Indication: VITAMIN SUPPLEMENTATION
     Dosage: 5 MG, QD
     Route: 048
     Dates: start: 20190821
  11. PEMETREXED COMP-PEME+CSOLINF [Suspect]
     Active Substance: PEMETREXED
     Indication: SQUAMOUS CELL CARCINOMA OF LUNG
     Dosage: 900 MG, Q3W
     Route: 042
     Dates: start: 20190820
  12. CARBOPLATIN COMP-CAB+CSOLINF [Suspect]
     Active Substance: CARBOPLATIN
     Indication: SQUAMOUS CELL CARCINOMA OF LUNG
     Dosage: 690 MG, Q3W
     Route: 042
     Dates: start: 20190820
  13. PEMETREXED COMP-PEME+CSOLINF [Suspect]
     Active Substance: PEMETREXED
     Indication: NON-SMALL CELL LUNG CANCER
  14. OPTINEURON [Concomitant]
     Indication: VITAMIN SUPPLEMENTATION
     Dosage: UNK
     Route: 065
     Dates: start: 20190711

REACTIONS (1)
  - Pericardial effusion [Recovered/Resolved]

NARRATIVE: CASE EVENT DATE: 20191107
